FAERS Safety Report 5818729-7 (Version None)
Quarter: 2008Q3

REPORT INFORMATION
  Report Type: 
  Country: None (occurrence: None)
  Receive Date: 20080723
  Receipt Date: 20080722
  Transmission Date: 20090109
  Serious: Yes (Hospitalization, Other)
  Sender: FDA-Public Use
  Company Number: US-BAYER-200811674NA

PATIENT
  Age: 57 Year
  Sex: Male
  Weight: 104 kg

DRUGS (3)
  1. BETASERON [Suspect]
     Indication: SECONDARY PROGRESSIVE MULTIPLE SCLEROSIS
     Dosage: TOTAL DAILY DOSE: 8 MIU
     Route: 058
     Dates: start: 19940101, end: 20050405
  2. BETASERON [Suspect]
     Dosage: TOTAL DAILY DOSE: 8 MIU
     Route: 058
     Dates: start: 20050518, end: 20071230
  3. SOLU-MEDROL [Concomitant]
     Dosage: AS USED: 500 MG
     Route: 042
     Dates: start: 20060101

REACTIONS (5)
  - CELLULITIS [None]
  - INJECTION SITE CELLULITIS [None]
  - INJECTION SITE DISCOLOURATION [None]
  - INJECTION SITE REACTION [None]
  - THROMBOSIS [None]
